FAERS Safety Report 13948331 (Version 3)
Quarter: 2017Q4

REPORT INFORMATION
  Report Type: Spontaneous
  Country: US (occurrence: US)
  Receive Date: 20170908
  Receipt Date: 20171026
  Transmission Date: 20180320
  Serious: Yes (Death, Hospitalization)
  Sender: FDA-Public Use
  Company Number: US-TEVA-803145USA

PATIENT
  Age: 59 Year
  Sex: Male

DRUGS (1)
  1. PROAIR HFA [Suspect]
     Active Substance: ALBUTEROL SULFATE
     Route: 065

REACTIONS (3)
  - Disease complication [Fatal]
  - Chronic obstructive pulmonary disease [Unknown]
  - Infection [Unknown]

NARRATIVE: CASE EVENT DATE: 201702
